FAERS Safety Report 4612316-4 (Version None)
Quarter: 2005Q1

REPORT INFORMATION
  Report Type: 
  Country: None (occurrence: None)
  Receive Date: 20050316
  Receipt Date: 20050223
  Transmission Date: 20050727
  Serious: Yes (Hospitalization, Other)
  Sender: FDA-Public Use
  Company Number: USA050392482

PATIENT
  Sex: Female

DRUGS (2)
  1. ZYPREXA [Suspect]
     Indication: ACUTE PSYCHOSIS
     Dosage: 15 MG DAY
  2. PROZAC [Concomitant]

REACTIONS (4)
  - AKATHISIA [None]
  - GRAVITATIONAL OEDEMA [None]
  - INSOMNIA [None]
  - PULMONARY OEDEMA [None]
